FAERS Safety Report 6536961-4 (Version None)
Quarter: 2010Q1

REPORT INFORMATION
  Report Type: 
  Country: None (occurrence: None)
  Receive Date: 20100105
  Receipt Date: 20091224
  Transmission Date: 20100710
  Serious: Yes (Death)
  Sender: FDA-Public Use
  Company Number: AE-2009-025

PATIENT

DRUGS (4)
  1. METFORMIN HYDROCHLORIDE [Suspect]
     Indication: GESTATIONAL DIABETES
     Dosage: 500MG, BID, TRANSPLACENTAL
     Route: 064
  2. COCAINE [Suspect]
     Dosage: TRANSPLACENTAL
     Route: 064
  3. ALCOHOL [Suspect]
     Dosage: TRANSPLACENTAL
     Route: 064
  4. DEXTROSE [Concomitant]

REACTIONS (4)
  - INDUCED LABOUR [None]
  - INTRA-UTERINE DEATH [None]
  - MATERNAL DRUGS AFFECTING FOETUS [None]
  - METABOLIC ACIDOSIS [None]
